FAERS Safety Report 6879682-0 (Version None)
Quarter: 2010Q3

REPORT INFORMATION
  Report Type: 
  Country: None (occurrence: None)
  Receive Date: 20100728
  Receipt Date: 20100714
  Transmission Date: 20110219
  Serious: Yes (Hospitalization)
  Sender: FDA-Public Use
  Company Number: US-ELI_LILLY_AND_COMPANY-US201006004317

PATIENT
  Sex: Male

DRUGS (12)
  1. FORTEO [Suspect]
     Indication: OSTEOPOROSIS
     Dosage: 20 UG, DAILY (1/D)
  2. FORADIL [Concomitant]
  3. PRAVASTATIN [Concomitant]
  4. BUMETANIDE [Concomitant]
  5. TORSEMIDE [Concomitant]
  6. PREDNISONE [Concomitant]
  7. OSCAL [Concomitant]
  8. METOPROLOL TARTRATE [Concomitant]
  9. MULTI-VIT [Concomitant]
  10. DOXYCYCLA [Concomitant]
  11. ALBUTEROL [Concomitant]
  12. SPIRONOLACTONE [Concomitant]

REACTIONS (2)
  - CELLULITIS [None]
  - OEDEMA PERIPHERAL [None]
